FAERS Safety Report 4343436-X (Version None)
Quarter: 2004Q2

REPORT INFORMATION
  Report Type: 
  Country: None (occurrence: None)
  Receive Date: 20040419
  Receipt Date: 20040407
  Transmission Date: 20050107
  Serious: Yes (Hospitalization)
  Sender: FDA-Public Use
  Company Number: 2004UW05299

PATIENT
  Age: 75 Year
  Sex: Female

DRUGS (8)
  1. CRESTOR [Suspect]
     Dosage: 20 MG PO
     Route: 048
  2. AVALIDE [Concomitant]
  3. LASIX /SCH/ [Concomitant]
  4. ZYRTEC [Concomitant]
  5. PROCARDIA [Concomitant]
  6. PLAVIX [Concomitant]
  7. CARDIZEM [Concomitant]
  8. INSULIN /CZE/ [Concomitant]

REACTIONS (5)
  - ALANINE AMINOTRANSFERASE INCREASED [None]
  - ASPARTATE AMINOTRANSFERASE INCREASED [None]
  - LIVER FUNCTION TEST ABNORMAL [None]
  - MYASTHENIA GRAVIS [None]
  - URINARY TRACT INFECTION [None]
